FAERS Safety Report 8822823 (Version 2)
Quarter: 2019Q1

REPORT INFORMATION
  Report Type: Spontaneous
  Country: FR (occurrence: FR)
  Receive Date: 20121003
  Receipt Date: 20190226
  Transmission Date: 20190418
  Serious: Yes (Hospitalization, Other)
  Sender: FDA-Public Use
  Company Number: FR-ASTRAZENECA-2012SE75060

PATIENT
  Age: 76 Year
  Sex: Male

DRUGS (9)
  1. NOVONORM [Concomitant]
     Active Substance: REPAGLINIDE
  2. LIPANTHYL [Concomitant]
     Active Substance: FENOFIBRATE
  3. INEXIUM [Suspect]
     Active Substance: ESOMEPRAZOLE
     Dosage: DAILY
     Route: 048
     Dates: start: 20110530, end: 20110812
  4. INEXIUM [Suspect]
     Active Substance: ESOMEPRAZOLE
     Dosage: DAILY
     Route: 048
  5. BURINEX [Concomitant]
     Active Substance: BUMETANIDE
  6. NOVONORM [Concomitant]
     Active Substance: REPAGLINIDE
     Dates: end: 20110728
  7. BURINEX [Concomitant]
     Active Substance: BUMETANIDE
     Dates: end: 20110726
  8. LIPANTHYL [Concomitant]
     Active Substance: FENOFIBRATE
     Dates: end: 20110727
  9. CORDARONE [Suspect]
     Active Substance: AMIODARONE HYDROCHLORIDE
     Route: 048
     Dates: end: 20110805

REACTIONS (7)
  - Polyarthritis [Unknown]
  - Exfoliative rash [Recovered/Resolved]
  - Thrombocytopenia [Unknown]
  - Arthralgia [Recovered/Resolved]
  - Transaminases increased [Recovered/Resolved]
  - Eosinophilia [Unknown]
  - Rash [Recovered/Resolved]

NARRATIVE: CASE EVENT DATE: 201106
